FAERS Safety Report 5213639-0 (Version None)
Quarter: 2007Q1

REPORT INFORMATION
  Report Type: 
  Country: None (occurrence: None)
  Receive Date: 20070119
  Receipt Date: 20070110
  Transmission Date: 20070707
  Serious: Yes (Other)
  Sender: FDA-Public Use
  Company Number: GB-PFIZER INC-2007004327

PATIENT
  Sex: Female

DRUGS (3)
  1. DEPO-PROVERA [Suspect]
  2. WARFARIN SODIUM [Interacting]
  3. ANTIHYPERTENSIVES [Concomitant]

REACTIONS (2)
  - DRUG INTERACTION [None]
  - LABORATORY TEST ABNORMAL [None]
